FAERS Safety Report 14425077 (Version 2)
Quarter: 2018Q1

REPORT INFORMATION
  Report Type: Spontaneous
  Country: US (occurrence: US)
  Receive Date: 20180123
  Receipt Date: 20180213
  Transmission Date: 20180509
  Serious: Yes (Other)
  Sender: FDA-Public Use
  Company Number: US-RISING PHARMACEUTICALS, INC.-2018RIS00006

PATIENT
  Age: 37 Year
  Sex: Female
  Weight: 59.41 kg

DRUGS (1)
  1. CROMOLYN SODIUM. [Suspect]
     Active Substance: CROMOLYN SODIUM
     Indication: EHLERS-DANLOS SYNDROME
     Dosage: 400 MG, 1X/DAY
     Dates: start: 201611, end: 2017

REACTIONS (5)
  - Off label use [Unknown]
  - Cellulitis [Unknown]
  - Nodule [Unknown]
  - Intentional dose omission [Not Recovered/Not Resolved]
  - Unevaluable event [Unknown]

NARRATIVE: CASE EVENT DATE: 201611
